FAERS Safety Report 16138706 (Version 3)
Quarter: 2019Q2

REPORT INFORMATION
  Report Type: Report from Study
  Country: ZA (occurrence: ZA)
  Receive Date: 20190401
  Receipt Date: 20190527
  Transmission Date: 20190711
  Serious: Yes (Hospitalization)
  Sender: FDA-Public Use
  Company Number: ZA-SA-2019SA082938

PATIENT
  Age: 44 Year
  Sex: Male

DRUGS (3)
  1. OPTISULIN (INSULIN GLARGINE) [Suspect]
     Active Substance: INSULIN GLARGINE
     Dosage: 14 U, HS (BED TIME)
     Dates: start: 20190227
  2. NO STUDY DRUG GIVEN [Suspect]
     Active Substance: UNSPECIFIED INGREDIENT
  3. METFORMIN [Concomitant]
     Active Substance: METFORMIN HYDROCHLORIDE
     Dosage: 500 MG, BID
     Dates: start: 20190228

REACTIONS (8)
  - Gastritis [Not Recovered/Not Resolved]
  - Abdominal discomfort [Not Recovered/Not Resolved]
  - Gastrointestinal infection [Not Recovered/Not Resolved]
  - Decreased appetite [Not Recovered/Not Resolved]
  - Nausea [Not Recovered/Not Resolved]
  - Vomiting [Not Recovered/Not Resolved]
  - Glycosylated haemoglobin increased [Unknown]
  - Malaise [Unknown]

NARRATIVE: CASE EVENT DATE: 20190324
